FAERS Safety Report 5945231-4 (Version None)
Quarter: 2008Q4

REPORT INFORMATION
  Report Type: 
  Country: None (occurrence: None)
  Receive Date: 20081107
  Receipt Date: 20081030
  Transmission Date: 20090506
  Serious: Yes (Hospitalization, Disabling, Other)
  Sender: FDA-Public Use
  Company Number: AT-BAYER-200829656GPV

PATIENT
  Age: 77 Year
  Sex: Female

DRUGS (3)
  1. ASPIRIN [Suspect]
     Indication: VARICOSE VEIN
     Route: 065
  2. SIMVASTATIN [Concomitant]
     Indication: DRUG USE FOR UNKNOWN INDICATION
     Route: 065
  3. FLUNITRAZEPAM [Concomitant]
     Indication: DRUG USE FOR UNKNOWN INDICATION
     Route: 065

REACTIONS (8)
  - BACK PAIN [None]
  - EXTRADURAL HAEMATOMA [None]
  - FAECAL INCONTINENCE [None]
  - GASTROINTESTINAL HYPOMOTILITY [None]
  - HYPOAESTHESIA [None]
  - MUSCULAR WEAKNESS [None]
  - PARAPLEGIA [None]
  - URINARY HESITATION [None]
